FAERS Safety Report 18031024 (Version 1)
Quarter: 2020Q3

REPORT INFORMATION
  Report Type: Spontaneous
  Country: US (occurrence: US)
  Receive Date: 20200715
  Receipt Date: 20200715
  Transmission Date: 20201103
  Serious: Yes (Other)
  Sender: FDA-Public Use
  Company Number: None

PATIENT
  Sex: Female

DRUGS (6)
  1. SUBOXONE [Concomitant]
     Active Substance: BUPRENORPHINE HYDROCHLORIDE\NALOXONE HYDROCHLORIDE
  2. BUPREN/NALOX MIST [Concomitant]
  3. DULOXETINE. [Suspect]
     Active Substance: DULOXETINE
  4. CLINDAMYCIN. [Concomitant]
     Active Substance: CLINDAMYCIN
  5. BUPROPN [Concomitant]
  6. TALTZ [Suspect]
     Active Substance: IXEKIZUMAB
     Indication: PSORIASIS
     Dosage: ?          OTHER FREQUENCY:Q4WEEKS;?
     Route: 058
     Dates: start: 20190615

REACTIONS (1)
  - Breast cancer [None]
